FAERS Safety Report 15914982 (Version 1)
Quarter: 2019Q1

REPORT INFORMATION
  Report Type: Spontaneous
  Country: US (occurrence: US)
  Receive Date: 20190114
  Receipt Date: 20190114
  Transmission Date: 20190417
  Serious: No
  Sender: FDA-Public Use
  Company Number: None

PATIENT
  Age: 51 Year
  Sex: Female
  Weight: 92.99 kg

DRUGS (2)
  1. TREMFYA [Suspect]
     Active Substance: GUSELKUMAB
     Indication: PSORIASIS
     Dosage: INJECT 100MG SUBCUTANEOUSLY ON WEEK 0 AND WEEK 4 AS DIRECTED
     Route: 058
     Dates: start: 201809
  2. TREMFYA [Suspect]
     Active Substance: GUSELKUMAB
     Indication: PSORIATIC ARTHROPATHY
     Dosage: INJECT 100MG SUBCUTANEOUSLY ON WEEK 0 AND WEEK 4 AS DIRECTED
     Route: 058
     Dates: start: 201809

REACTIONS (2)
  - Psoriasis [None]
  - Fatigue [None]
